FAERS Safety Report 4893678-X (Version None)
Quarter: 2005Q4

REPORT INFORMATION
  Report Type: 
  Country: None (occurrence: None)
  Receive Date: 20051223
  Receipt Date: 20050923
  Transmission Date: 20060501
  Serious: No
  Sender: FDA-Public Use
  Company Number: 2005PV002432

PATIENT
  Age: 24 Year
  Sex: Female
  Weight: 90.7194 kg

DRUGS (5)
  1. SYMLIN [Suspect]
     Indication: DIABETES MELLITUS NON-INSULIN-DEPENDENT
     Dosage: 120 MCG;TID;SC ; 60 MCG;TID;SC
     Route: 058
     Dates: start: 20050909, end: 20050915
  2. SYMLIN [Suspect]
     Indication: DIABETES MELLITUS NON-INSULIN-DEPENDENT
     Dosage: 120 MCG;TID;SC ; 60 MCG;TID;SC
     Route: 058
     Dates: start: 20050916
  3. GLUCOPHAGE [Concomitant]
  4. HUMULIN N [Concomitant]
  5. AMOXICILLIN [Concomitant]

REACTIONS (2)
  - RASH PRURITIC [None]
  - WEIGHT DECREASED [None]
